FAERS Safety Report 25962968 (Version 1)
Quarter: 2025Q4

REPORT INFORMATION
  Report Type: Spontaneous
  Country: EU (occurrence: EU)
  Receive Date: 20251027
  Receipt Date: 20251027
  Transmission Date: 20260117
  Serious: Yes (Other)
  Sender: NOVARTIS
  Company Number: EU-002147023-NVSC2025HR162085

PATIENT
  Sex: Female

DRUGS (2)
  1. TASIGNA [Suspect]
     Active Substance: NILOTINIB
     Indication: Chronic myeloid leukaemia
     Dosage: 400 MG (2X400 MG)
     Route: 065
     Dates: start: 2012, end: 2017
  2. TASIGNA [Suspect]
     Active Substance: NILOTINIB
     Dosage: UNK (2X200)
     Route: 065

REACTIONS (4)
  - Ischaemic stroke [Unknown]
  - Carotid artery occlusion [Unknown]
  - Vasculitis [Recovered/Resolved]
  - Loss of therapeutic response [Unknown]

NARRATIVE: CASE EVENT DATE: 20150101
